FAERS Safety Report 5495033-0 (Version None)
Quarter: 2007Q4

REPORT INFORMATION
  Report Type: 
  Country: None (occurrence: None)
  Receive Date: 20071024
  Receipt Date: 20071010
  Transmission Date: 20080405
  Serious: Yes (Other)
  Sender: FDA-Public Use
  Company Number: US-SHR-US-2007-010464

PATIENT
  Age: 36 Year
  Sex: Female
  Weight: 64.399 kg

DRUGS (16)
  1. BETASERON [Suspect]
     Indication: SECONDARY PROGRESSIVE MULTIPLE SCLEROSIS
     Dosage: 8 MIU, EVERY 2D
     Route: 058
     Dates: start: 20061218
  2. LIORESAL ^NOVARTIS^ [Concomitant]
     Dosage: 250 MBQ, 1X/DAY
     Route: 037
     Dates: start: 20060622
  3. TAZICEF [Concomitant]
     Dosage: 1000 MG, UNK
     Dates: start: 20070405
  4. CRANBERRY [Concomitant]
     Dosage: 500 MG, 1X/DAY
  5. DURAGESIC-100 [Concomitant]
     Dosage: 12 A?G/H, EVERY 3D
     Route: 023
  6. GARAMYCIN [Concomitant]
     Dosage: 120 MG, EVERY 12H
     Dates: start: 20070405
  7. DULCOLAX [Concomitant]
     Dosage: 5 MG, AS REQ'D
  8. COLACE [Concomitant]
     Dosage: 100 MG, AS REQ'D
  9. CEPHULAC [Concomitant]
     Dosage: 30 ML, 3X/DAY
  10. ATIVAN [Concomitant]
     Dosage: 1 MG, 3X/DAY
  11. VITAMIN CAP [Concomitant]
     Dosage: UNK, 1X/DAY
  12. OXYBUTYNIN CHLORIDE [Concomitant]
     Dosage: 5 MG, 3X/DAY
  13. ZANAFLEX [Concomitant]
     Dosage: 6 MG, 3X/DAY
  14. ACETAMINOPHEN [Concomitant]
  15. ASCORBIC ACID [Concomitant]
     Dosage: 500 MG, 1X/DAY
  16. ZINC [Concomitant]
     Dosage: 50 MG, 1X/DAY

REACTIONS (1)
  - OSTEOMYELITIS [None]
